FAERS Safety Report 8963804 (Version 1)
Quarter: 2012Q4

REPORT INFORMATION
  Report Type: 
  Country: US (occurrence: US)
  Receive Date: 20121213
  Receipt Date: 20121213
  Transmission Date: 20130627
  Serious: No
  Sender: FDA-Public Use
  Company Number: US-BAYER-2012-130445

PATIENT
  Age: 37 Year
  Sex: Male
  Weight: 86 kg

DRUGS (2)
  1. ALEVE CAPLET/TABLET,MIDOL EXTENDED RELIEF CAPLET [Suspect]
     Indication: HEADACHE
     Dosage: 3 DF, UNK
     Route: 048
  2. MULTIPLE VITAMINS [Concomitant]

REACTIONS (6)
  - Inappropriate schedule of drug administration [None]
  - Somnolence [None]
  - Abdominal pain upper [Recovered/Resolved]
  - Nausea [Recovered/Resolved]
  - Chills [Recovered/Resolved]
  - Pyrexia [Recovered/Resolved]
